FAERS Safety Report 4643052-6 (Version None)
Quarter: 2005Q2

REPORT INFORMATION
  Report Type: 
  Country: None (occurrence: None)
  Receive Date: 20050421
  Receipt Date: 20050408
  Transmission Date: 20051028
  Serious: Yes (Hospitalization)
  Sender: FDA-Public Use
  Company Number: 2005057506

PATIENT
  Age: 96 Year
  Sex: Female

DRUGS (3)
  1. BEXTRA [Suspect]
     Indication: OSTEOARTHRITIS
     Dosage: 20 MG (1 IN 1 D), ORAL
     Route: 048
     Dates: start: 20050318, end: 20050326
  2. CAPOZIDE (CAPTOPRIL, HYDROCLOROTHIAZIDE) [Concomitant]
  3. ASCRIPTIN (ACETYLSALICYCLIC ACID, ALUMINIUM HYDROXIDE, MAGNESIUM HYDRO [Concomitant]

REACTIONS (3)
  - DERMATITIS [None]
  - PETECHIAE [None]
  - URTICARIA [None]
